FAERS Safety Report 25974525 (Version 1)
Quarter: 2025Q4

REPORT INFORMATION
  Report Type: Spontaneous
  Country: US (occurrence: US)
  Receive Date: 20251029
  Receipt Date: 20251029
  Transmission Date: 20260117
  Serious: Yes (Hospitalization)
  Sender: MYLAN
  Company Number: US-MYLANLABS-2025M1091704

PATIENT
  Age: 31 Year
  Sex: Male

DRUGS (32)
  1. NITROGLYCERIN [Suspect]
     Active Substance: NITROGLYCERIN
     Indication: Arteriospasm coronary
     Dosage: 200 MILLIGRAM
  2. NITROGLYCERIN [Suspect]
     Active Substance: NITROGLYCERIN
     Dosage: 200 MILLIGRAM
     Route: 022
  3. NITROGLYCERIN [Suspect]
     Active Substance: NITROGLYCERIN
     Dosage: 200 MILLIGRAM
     Route: 022
  4. NITROGLYCERIN [Suspect]
     Active Substance: NITROGLYCERIN
     Dosage: 200 MILLIGRAM
  5. ADENOSINE [Suspect]
     Active Substance: ADENOSINE
     Indication: Arteriospasm coronary
     Dosage: 50 MICROGRAM
  6. ADENOSINE [Suspect]
     Active Substance: ADENOSINE
     Dosage: 50 MICROGRAM
     Route: 022
  7. ADENOSINE [Suspect]
     Active Substance: ADENOSINE
     Dosage: 50 MICROGRAM
     Route: 022
  8. ADENOSINE [Suspect]
     Active Substance: ADENOSINE
     Dosage: 50 MICROGRAM
  9. TICAGRELOR [Suspect]
     Active Substance: TICAGRELOR
     Indication: Antiplatelet therapy
     Dosage: UNK
  10. TICAGRELOR [Suspect]
     Active Substance: TICAGRELOR
     Dosage: UNK
     Route: 065
  11. TICAGRELOR [Suspect]
     Active Substance: TICAGRELOR
     Dosage: UNK
     Route: 065
  12. TICAGRELOR [Suspect]
     Active Substance: TICAGRELOR
     Dosage: UNK
  13. NICARDIPINE [Suspect]
     Active Substance: NICARDIPINE
     Indication: Arteriospasm coronary
     Dosage: 200 MILLIGRAM
  14. NICARDIPINE [Suspect]
     Active Substance: NICARDIPINE
     Dosage: 200 MILLIGRAM
     Route: 022
  15. NICARDIPINE [Suspect]
     Active Substance: NICARDIPINE
     Dosage: 200 MILLIGRAM
     Route: 022
  16. NICARDIPINE [Suspect]
     Active Substance: NICARDIPINE
     Dosage: 200 MILLIGRAM
  17. PHENYLEPHRINE [Suspect]
     Active Substance: PHENYLEPHRINE
     Indication: Hypotension
     Dosage: UNK, BOLUS
  18. PHENYLEPHRINE [Suspect]
     Active Substance: PHENYLEPHRINE
     Dosage: UNK, BOLUS
     Route: 065
  19. PHENYLEPHRINE [Suspect]
     Active Substance: PHENYLEPHRINE
     Dosage: UNK, BOLUS
     Route: 065
  20. PHENYLEPHRINE [Suspect]
     Active Substance: PHENYLEPHRINE
     Dosage: UNK, BOLUS
  21. ASPIRIN [Suspect]
     Active Substance: ASPIRIN
     Indication: Antiplatelet therapy
     Dosage: UNK
  22. ASPIRIN [Suspect]
     Active Substance: ASPIRIN
     Dosage: UNK
     Route: 065
  23. ASPIRIN [Suspect]
     Active Substance: ASPIRIN
     Dosage: UNK
     Route: 065
  24. ASPIRIN [Suspect]
     Active Substance: ASPIRIN
     Dosage: UNK
  25. AMLODIPINE [Concomitant]
     Active Substance: AMLODIPINE BESYLATE
     Indication: Product used for unknown indication
     Dosage: UNK
  26. AMLODIPINE [Concomitant]
     Active Substance: AMLODIPINE BESYLATE
     Dosage: UNK
     Route: 065
  27. AMLODIPINE [Concomitant]
     Active Substance: AMLODIPINE BESYLATE
     Dosage: UNK
     Route: 065
  28. AMLODIPINE [Concomitant]
     Active Substance: AMLODIPINE BESYLATE
     Dosage: UNK
  29. SULFAMETHOXAZOLE\TRIMETHOPRIM [Concomitant]
     Active Substance: SULFAMETHOXAZOLE\TRIMETHOPRIM
     Indication: Prophylaxis
     Dosage: UNK
  30. SULFAMETHOXAZOLE\TRIMETHOPRIM [Concomitant]
     Active Substance: SULFAMETHOXAZOLE\TRIMETHOPRIM
     Dosage: UNK
     Route: 065
  31. SULFAMETHOXAZOLE\TRIMETHOPRIM [Concomitant]
     Active Substance: SULFAMETHOXAZOLE\TRIMETHOPRIM
     Dosage: UNK
     Route: 065
  32. SULFAMETHOXAZOLE\TRIMETHOPRIM [Concomitant]
     Active Substance: SULFAMETHOXAZOLE\TRIMETHOPRIM
     Dosage: UNK

REACTIONS (2)
  - Drug ineffective [Unknown]
  - Gastrointestinal haemorrhage [Unknown]
